FAERS Safety Report 9515500 (Version 1)
Quarter: 2013Q1

REPORT INFORMATION
  Report Type: Spontaneous
  Country: US (occurrence: None)
  Receive Date: 20130305
  Receipt Date: 20130305
  Transmission Date: 20140127
  Serious: Yes (Other)
  Sender: FDA-Public Use
  Company Number: 163-21880-12102849

PATIENT
  Age: 57 Year
  Sex: Female
  Weight: 85.73 kg

DRUGS (14)
  1. REVLIMID [Suspect]
     Indication: PLASMA CELL MYELOMA
     Dosage: 10 MG, 21 IN 21 D, PO
     Route: 048
     Dates: start: 20120807
  2. ARMOUR(THYROID) [Concomitant]
  3. ATENOLOL(ATENOLOL) [Concomitant]
  4. BENADRYL(CLONALIN) [Concomitant]
  5. COUMADIN(WARFARIN SODIUM) [Concomitant]
  6. DEXAMETHASONE [Concomitant]
  7. FOLIC ACID (FOLIC ACID) [Concomitant]
  8. HYDROCODONE(HYDROCODONE) [Concomitant]
  9. LASIX(FUROSEMIDE) [Concomitant]
  10. MAGNESIUM(MAGNESIUM) [Concomitant]
  11. OXYCODONE(OXYCODONE) [Concomitant]
  12. PEPCID ACID(FAMOTIDINE) [Concomitant]
  13. POTASSIUM(POTASSIUM) [Concomitant]
  14. VITAMIN D (ERGOCALCIFEROL) [Concomitant]

REACTIONS (2)
  - Lung infection [None]
  - Anaemia [None]
